FAERS Safety Report 8781077 (Version 3)
Quarter: 2013Q2

REPORT INFORMATION
  Report Type: Spontaneous
  Country: JP (occurrence: JP)
  Receive Date: 20120913
  Receipt Date: 20130424
  Transmission Date: 20140414
  Serious: Yes (Hospitalization)
  Sender: FDA-Public Use
  Company Number: JP-009507513-1209JPN002318

PATIENT
  Age: 86 Year
  Sex: Female

DRUGS (7)
  1. GLACTIV [Suspect]
     Indication: TYPE 2 DIABETES MELLITUS
     Dosage: 50 MG, QD
     Route: 048
     Dates: start: 20120720, end: 20120724
  2. AMARYL [Suspect]
     Indication: TYPE 2 DIABETES MELLITUS
     Dosage: 1 MG, QD
     Route: 048
     Dates: start: 20120720, end: 20120724
  3. BASEN OD [Concomitant]
     Indication: TYPE 2 DIABETES MELLITUS
     Dosage: 0.3 MG, TID
     Dates: start: 20120622, end: 20120724
  4. OLMETEC [Concomitant]
     Dosage: UNK
     Dates: start: 20120528
  5. NIFELANTERN CR [Concomitant]
     Dosage: UNK
     Dates: start: 20120528
  6. HALCION [Concomitant]
     Dosage: UNK
     Dates: start: 20120528
  7. ROHYPNOL [Concomitant]
     Dosage: UNK
     Dates: start: 20120528

REACTIONS (2)
  - Hypoglycaemia [Recovered/Resolved]
  - Drug prescribing error [Unknown]
